FAERS Safety Report 4400580-6 (Version None)
Quarter: 2004Q3

REPORT INFORMATION
  Report Type: 
  Country: None (occurrence: None)
  Receive Date: 20040716
  Receipt Date: 20040716
  Transmission Date: 20050211
  Serious: Yes (Life-Threatening, Hospitalization)
  Sender: FDA-Public Use
  Company Number: None

PATIENT
  Age: 80 Year
  Sex: Male
  Weight: 97.3 kg

DRUGS (3)
  1. WARFARIN SODIUM [Suspect]
     Indication: ATRIAL FIBRILLATION
     Dosage: 5.5 MG  QD  ORAL
     Route: 048
     Dates: start: 20021001, end: 20040615
  2. WARFARIN SODIUM [Suspect]
     Indication: MITRAL VALVE REPLACEMENT
     Dosage: 5.5 MG  QD  ORAL
     Route: 048
     Dates: start: 20021001, end: 20040615
  3. SALSALATE  500 MG [Suspect]
     Dosage: 500 MG  BID  ORAL
     Route: 048
     Dates: start: 20031016, end: 20040122

REACTIONS (1)
  - HAEMATOCHEZIA [None]
